FAERS Safety Report 5525950-4 (Version None)
Quarter: 2007Q4

REPORT INFORMATION
  Report Type: 
  Country: None (occurrence: None)
  Receive Date: 20071126
  Receipt Date: 20071114
  Transmission Date: 20080405
  Serious: Yes (Hospitalization, Other)
  Sender: FDA-Public Use
  Company Number: GB-PFIZER INC-2007097805

PATIENT
  Sex: Male

DRUGS (1)
  1. CHAMPIX [Suspect]
     Route: 048

REACTIONS (6)
  - CHOKING [None]
  - DECREASED APPETITE [None]
  - MOUTH ULCERATION [None]
  - ORAL PAIN [None]
  - SPEECH DISORDER [None]
  - SWOLLEN TONGUE [None]
